FAERS Safety Report 8589680-7 (Version None)
Quarter: 2012Q3

REPORT INFORMATION
  Report Type: 
  Country: None (occurrence: None)
  Receive Date: 20120813
  Receipt Date: 20120718
  Transmission Date: 20120928
  Serious: Yes (Hospitalization)
  Sender: FDA-Public Use
  Company Number: JP-009507513-1208JPN005054

PATIENT

DRUGS (7)
  1. PEGINTERFERON ALFA-2B [Suspect]
     Indication: HEPATITIS C
     Dosage: 1MCG/KG/WEEK
     Route: 058
     Dates: start: 20111102, end: 20120627
  2. TELAVIC [Suspect]
     Indication: HEPATITIS C
     Route: 048
     Dates: start: 20120509, end: 20120511
  3. TELAVIC [Suspect]
     Route: 048
     Dates: start: 20120514, end: 20120522
  4. [THERAPY UNSPECIFIED] [Concomitant]
     Indication: HEPATITIS C
     Dosage: 2DAYS/WEEK
     Route: 042
     Dates: start: 20111102, end: 20120523
  5. REBETOL [Suspect]
     Indication: HEPATITIS C
     Route: 048
     Dates: start: 20111102, end: 20120528
  6. TELAVIC [Suspect]
     Route: 048
     Dates: start: 20120523, end: 20120630
  7. REBETOL [Suspect]
     Route: 048
     Dates: start: 20120529, end: 20120630

REACTIONS (2)
  - HAEMATEMESIS [None]
  - GASTROINTESTINAL HAEMORRHAGE [None]
